FAERS Safety Report 4817399-4 (Version None)
Quarter: 2005Q4

REPORT INFORMATION
  Report Type: 
  Country: None (occurrence: None)
  Receive Date: 20051031
  Receipt Date: 20051020
  Transmission Date: 20060501
  Serious: Yes (Life-Threatening)
  Sender: FDA-Public Use
  Company Number: 2005JP001690

PATIENT
  Age: 56 Year
  Sex: Female
  Weight: 59.1 kg

DRUGS (13)
  1. TACROLIMUS CAPSULES (TACROLIMUS) CAPSULES) [Suspect]
     Indication: RHEUMATOID ARTHRITIS
     Dosage: 1.00 MG, UNKNOWN/D, ORAL; 1.50 MG, UNKNOWN/D, ORAL; 2.00 MG, UNKNOWN/D, ORAL
     Route: 048
     Dates: start: 20050617, end: 20050101
  2. TACROLIMUS CAPSULES (TACROLIMUS) CAPSULES) [Suspect]
     Indication: RHEUMATOID ARTHRITIS
     Dosage: 1.00 MG, UNKNOWN/D, ORAL; 1.50 MG, UNKNOWN/D, ORAL; 2.00 MG, UNKNOWN/D, ORAL
     Route: 048
     Dates: start: 20050520, end: 20050602
  3. TACROLIMUS CAPSULES (TACROLIMUS) CAPSULES) [Suspect]
     Indication: RHEUMATOID ARTHRITIS
     Dosage: 1.00 MG, UNKNOWN/D, ORAL; 1.50 MG, UNKNOWN/D, ORAL; 2.00 MG, UNKNOWN/D, ORAL
     Route: 048
     Dates: start: 20050603, end: 20050616
  4. ANPLAG (SARPOGRELATE HYDROCHLORIDE) UNKNOWN [Suspect]
     Indication: ARTERIAL OCCLUSIVE DISEASE
     Dosage: 100.00 MG, TID, ORAL
     Route: 048
     Dates: start: 20031225
  5. VOLTAREN - SLOW RELEASE ^CIBA-GEIGY^ CAPSULE [Concomitant]
  6. ACTOS ^TAKEDA^ (PIOGLITAZONE) TABLET [Concomitant]
  7. SELBEX (TEPRENONE) CAPSULE [Concomitant]
  8. PREDNISOLONE [Concomitant]
  9. PREDOHAN (PREDNISOLONE) TABLET [Concomitant]
  10. MEVALOTIN (PRAVASTATIN SODIUM) TABLET [Concomitant]
  11. FAMOGAST TABLET [Concomitant]
  12. LACTION (INDOMETACIN) [Concomitant]
  13. ACTONEL [Suspect]
     Indication: OSTEOPOROSIS
     Dosage: 2.50 MG QOD ORAL
     Route: 048
     Dates: start: 20040528

REACTIONS (2)
  - STOMACH DISCOMFORT [None]
  - SUBARACHNOID HAEMORRHAGE [None]
